FAERS Safety Report 10886031 (Version 1)
Quarter: 2015Q1

REPORT INFORMATION
  Report Type: Spontaneous
  Country: US (occurrence: None)
  Receive Date: 20150227
  Receipt Date: 20150227
  Transmission Date: 20150721
  Serious: No
  Sender: FDA-Public Use
  Company Number: None

PATIENT
  Age: 48 Year
  Sex: Female

DRUGS (13)
  1. OXYBUTYNIN [Concomitant]
     Active Substance: OXYBUTYNIN
  2. CLOBETASOL [Concomitant]
     Active Substance: CLOBETASOL
  3. TECFIDERA [Concomitant]
     Active Substance: DIMETHYL FUMARATE
  4. LISINOPRIL. [Concomitant]
     Active Substance: LISINOPRIL
  5. TOPIRAMATGE [Concomitant]
  6. OMEPRAZOLE. [Concomitant]
     Active Substance: OMEPRAZOLE
  7. AMPYRA [Suspect]
     Active Substance: DALFAMPRIDINE
     Indication: MULTIPLE SCLEROSIS
     Route: 048
     Dates: start: 201112, end: 201309
  8. ATORVASTATIN [Concomitant]
     Active Substance: ATORVASTATIN
  9. ALBUTEROL HFA [Concomitant]
     Active Substance: ALBUTEROL SULFATE
  10. MUPIROCIN. [Concomitant]
     Active Substance: MUPIROCIN
  11. FLUOCINONIDE. [Concomitant]
     Active Substance: FLUOCINONIDE
  12. AMPYRA [Concomitant]
     Active Substance: DALFAMPRIDINE
  13. HUMULIN N [Concomitant]
     Active Substance: INSULIN HUMAN

REACTIONS (3)
  - Mood altered [None]
  - Mobility decreased [None]
  - Urinary tract infection [None]

NARRATIVE: CASE EVENT DATE: 20140204
